FAERS Safety Report 8895757 (Version 2)
Quarter: 2013Q1

REPORT INFORMATION
  Report Type: Spontaneous
  Country: IT (occurrence: IT)
  Receive Date: 20121108
  Receipt Date: 20130222
  Transmission Date: 20140127
  Serious: Yes (Other)
  Sender: FDA-Public Use
  Company Number: IT-ROCHE-1153542

PATIENT
  Age: 44 Year
  Sex: Female
  Weight: 65 kg

DRUGS (13)
  1. MABTHERA [Suspect]
     Indication: LYMPHOMA
     Route: 042
     Dates: start: 20120406
  2. MABTHERA [Suspect]
     Route: 042
     Dates: end: 20120723
  3. VINCRISTINA [Suspect]
     Indication: LYMPHOMA
     Route: 042
     Dates: start: 20120329, end: 20120723
  4. CYCLOPHOSPHAMIDE [Concomitant]
     Route: 042
     Dates: start: 20120329, end: 20120329
  5. CYCLOPHOSPHAMIDE [Concomitant]
     Route: 065
     Dates: end: 20120723
  6. ALLOPURINOLO [Concomitant]
     Indication: TUMOUR LYSIS SYNDROME
     Route: 048
     Dates: start: 20120329, end: 20120410
  7. ALLOPURINOLO [Concomitant]
     Route: 065
  8. FOLIN [Concomitant]
     Route: 048
  9. DELTACORTENE [Concomitant]
     Route: 048
     Dates: start: 20120330, end: 20120402
  10. METHOTREXATE [Concomitant]
     Route: 042
     Dates: start: 20120330, end: 20120330
  11. METHOTREXATE [Concomitant]
     Route: 065
  12. ADRIBLASTINA [Concomitant]
     Route: 042
     Dates: start: 20120329, end: 20120329
  13. LANSOX [Concomitant]
     Indication: PROPHYLAXIS
     Route: 048
     Dates: start: 20120329, end: 20120329

REACTIONS (1)
  - Hypoacusis [Recovering/Resolving]
